FAERS Safety Report 5713212-1 (Version None)
Quarter: 2008Q2

REPORT INFORMATION
  Report Type: 
  Country: None (occurrence: None)
  Receive Date: 20080422
  Receipt Date: 19960205
  Transmission Date: 20081010
  Serious: Yes (Death, Hospitalization)
  Sender: FDA-Public Use
  Company Number: CH-ROCHE-58958

PATIENT
  Sex: Male
  Weight: 76.8 kg

DRUGS (5)
  1. ZALCITABINE [Suspect]
     Indication: HIV INFECTION
     Route: 048
     Dates: start: 19951120, end: 19960402
  2. PLACEBO [Suspect]
     Indication: HIV INFECTION
     Route: 048
     Dates: start: 19941018, end: 19960227
  3. ZIDOVUDINE [Suspect]
     Indication: HIV INFECTION
     Route: 048
     Dates: start: 19941018, end: 19960227
  4. DAPSONE [Concomitant]
     Route: 048
     Dates: start: 19940812, end: 19960227
  5. PYRIMETHAMIN [Concomitant]
     Route: 048
     Dates: start: 19940812, end: 19960227

REACTIONS (7)
  - AIDS DEMENTIA COMPLEX [None]
  - CONDITION AGGRAVATED [None]
  - DISEASE PROGRESSION [None]
  - GENERAL PHYSICAL HEALTH DETERIORATION [None]
  - LETHARGY [None]
  - NEUROPATHY PERIPHERAL [None]
  - PNEUMONIA [None]
